FAERS Safety Report 6429950-1 (Version None)
Quarter: 2009Q4

REPORT INFORMATION
  Report Type: 
  Country: None (occurrence: None)
  Receive Date: 20091106
  Receipt Date: 20091027
  Transmission Date: 20100525
  Serious: Yes (Other)
  Sender: FDA-Public Use
  Company Number: US-BAYER-200937574NA

PATIENT
  Sex: Female

DRUGS (1)
  1. MIRENA [Suspect]
     Indication: DRUG USE FOR UNKNOWN INDICATION
     Dosage: CONTINUOUS
     Route: 015
     Dates: start: 20090501

REACTIONS (4)
  - ABDOMINAL PAIN [None]
  - COMPLICATION OF DEVICE REMOVAL [None]
  - DEVICE DISLOCATION [None]
  - ECTOPIC PREGNANCY [None]
